FAERS Safety Report 6824481-9 (Version None)
Quarter: 2010Q3

REPORT INFORMATION
  Report Type: 
  Country: None (occurrence: None)
  Receive Date: 20100708
  Receipt Date: 20061026
  Transmission Date: 20110219
  Serious: No
  Sender: FDA-Public Use
  Company Number: US-PFIZER INC-2006132047

PATIENT
  Sex: Female
  Weight: 49.9 kg

DRUGS (3)
  1. CHANTIX [Suspect]
     Indication: SMOKING CESSATION THERAPY
     Dates: start: 20061022
  2. ALL OTHER THERAPEUTIC PRODUCTS [Concomitant]
     Indication: INSOMNIA
     Dates: end: 20061001
  3. LIBRAX [Concomitant]
     Dates: end: 20061001

REACTIONS (5)
  - ABDOMINAL PAIN [None]
  - FEELING ABNORMAL [None]
  - FEELING COLD [None]
  - FEELING JITTERY [None]
  - NERVOUSNESS [None]
